FAERS Safety Report 8231895-1 (Version None)
Quarter: 2012Q1

REPORT INFORMATION
  Report Type: 
  Country: None (occurrence: None)
  Receive Date: 20120323
  Receipt Date: 20120309
  Transmission Date: 20120608
  Serious: Yes (Hospitalization)
  Sender: FDA-Public Use
  Company Number: FR-ROCHE-1047680

PATIENT
  Sex: Female

DRUGS (2)
  1. AVASTIN [Suspect]
     Indication: BRAIN NEOPLASM MALIGNANT
     Dates: start: 20120220
  2. AVASTIN [Suspect]

REACTIONS (2)
  - AGGRESSION [None]
  - AGITATION [None]
